FAERS Safety Report 5464630-0 (Version None)
Quarter: 2007Q3

REPORT INFORMATION
  Report Type: 
  Country: None (occurrence: None)
  Receive Date: 20070820
  Receipt Date: 20070518
  Transmission Date: 20080115
  Serious: No
  Sender: FDA-Public Use
  Company Number: WAES 0705USA03657

PATIENT
  Age: 44 Year
  Sex: Female

DRUGS (2)
  1. JANUVIA [Suspect]
     Indication: DIABETES MELLITUS
     Dosage: 100 MG/DAILY/PO
     Route: 048
     Dates: start: 20070504, end: 20070517
  2. DIOVAN [Concomitant]

REACTIONS (3)
  - FATIGUE [None]
  - PHARYNGOLARYNGEAL PAIN [None]
  - RHINORRHOEA [None]
